FAERS Safety Report 21855201 (Version 1)
Quarter: 2023Q1

REPORT INFORMATION
  Report Type: Spontaneous
  Country: US (occurrence: US)
  Receive Date: 20230112
  Receipt Date: 20230112
  Transmission Date: 20230417
  Serious: No
  Sender: FDA-Public Use
  Company Number: US-KARYOPHARM-2022KPT001582

PATIENT

DRUGS (13)
  1. XPOVIO [Suspect]
     Active Substance: SELINEXOR
     Indication: Plasma cell myeloma
     Dosage: 60 MG, WEEKLY
     Route: 048
     Dates: start: 20221123, end: 202212
  2. ACYCLOVIR [Concomitant]
     Active Substance: ACYCLOVIR
  3. DEXAMETHASONE [Concomitant]
     Active Substance: DEXAMETHASONE
  4. DEXTROMETHORPHAN [Concomitant]
     Active Substance: DEXTROMETHORPHAN
  5. ELIQUIS [Concomitant]
     Active Substance: APIXABAN
  6. EMEND [Concomitant]
     Active Substance: APREPITANT
  7. FUROSEMIDE [Concomitant]
     Active Substance: FUROSEMIDE
  8. LOVASTATIN [Concomitant]
     Active Substance: LOVASTATIN
  9. MORPHINE [Concomitant]
     Active Substance: MORPHINE
  10. NARCAN [Concomitant]
     Active Substance: NALOXONE HYDROCHLORIDE
  11. OLANZAPINE [Concomitant]
     Active Substance: OLANZAPINE
  12. ACETAMINOPHEN\OXYCODONE HYDROCHLORIDE [Concomitant]
     Active Substance: ACETAMINOPHEN\OXYCODONE HYDROCHLORIDE
  13. POMALYST [Concomitant]
     Active Substance: POMALIDOMIDE

REACTIONS (2)
  - Plasma cell myeloma [Unknown]
  - Nervous system disorder [Unknown]

NARRATIVE: CASE EVENT DATE: 20220101
